FAERS Safety Report 15221323 (Version 18)
Quarter: 2019Q3

REPORT INFORMATION
  Report Type: Spontaneous
  Country: DE (occurrence: DE)
  Receive Date: 20180731
  Receipt Date: 20190924
  Transmission Date: 20191004
  Serious: Yes (Hospitalization)
  Sender: FDA-Public Use
  Company Number: PHHY2018DE029155

PATIENT
  Age: 83 Year
  Sex: Female

DRUGS (11)
  1. VALSARTAN HEXAL [Suspect]
     Active Substance: VALSARTAN
     Dosage: 1 DF, QD
     Route: 065
  2. VALSARTAN HEXAL COMP [Suspect]
     Active Substance: VALSARTAN
     Indication: PRODUCT USED FOR UNKNOWN INDICATION
     Dosage: 1 DF, QD(IN THE MORNING)
     Route: 065
     Dates: start: 2012, end: 2015
  3. VALSARTAN HEXAL COMP [Suspect]
     Active Substance: VALSARTAN
     Dosage: 1 DF, QD
     Route: 065
  4. DIOVAN [Concomitant]
     Active Substance: VALSARTAN
     Dosage: 1 DF, QD (IN THE EVENING)
     Route: 065
     Dates: start: 20180718
  5. ATACAND [Suspect]
     Active Substance: CANDESARTAN CILEXETIL
     Indication: PRODUCT USED FOR UNKNOWN INDICATION
     Dosage: UNK
     Route: 065
     Dates: start: 2015
  6. DIOVAN [Concomitant]
     Active Substance: VALSARTAN
     Indication: PRODUCT USED FOR UNKNOWN INDICATION
     Dosage: 1 DF, QD (IN THE EVENING)
     Route: 065
     Dates: end: 2012
  7. DIOVAN [Concomitant]
     Active Substance: VALSARTAN
     Dosage: 160 MG, UNK
     Route: 065
     Dates: start: 2018
  8. CO-DIOVAN [Suspect]
     Active Substance: HYDROCHLOROTHIAZIDE\VALSARTAN
     Dosage: 1 DF QD (IN THE MORNING)
     Route: 065
     Dates: start: 20180718
  9. CO-DIOVAN [Suspect]
     Active Substance: HYDROCHLOROTHIAZIDE\VALSARTAN
     Indication: PRODUCT USED FOR UNKNOWN INDICATION
     Dosage: 1 DF, QD
     Route: 065
     Dates: end: 2012
  10. DIOVAN [Concomitant]
     Active Substance: VALSARTAN
     Dosage: 2 DF, QD (CONCENTRATION: 160 MG)
     Route: 065
     Dates: start: 201906
  11. VALSARTAN HEXAL [Suspect]
     Active Substance: VALSARTAN
     Indication: PRODUCT USED FOR UNKNOWN INDICATION
     Dosage: 1 DF, QD(IN THE EVENING)
     Route: 065
     Dates: start: 2012, end: 2015

REACTIONS (11)
  - Cystitis interstitial [Recovered/Resolved]
  - Product outer packaging issue [Unknown]
  - Dysuria [Not Recovered/Not Resolved]
  - Genital pain [Recovered/Resolved]
  - Cystitis [Recovered/Resolved]
  - Stomatitis [Unknown]
  - Cystitis interstitial [Recovered/Resolved]
  - Nasal dryness [Unknown]
  - Pain [Recovered/Resolved]
  - Cystitis interstitial [Unknown]
  - Genital pain [Recovered/Resolved]

NARRATIVE: CASE EVENT DATE: 2014
